FAERS Safety Report 22239715 (Version 1)
Quarter: 2023Q2

REPORT INFORMATION
  Report Type: Spontaneous
  Country: US (occurrence: US)
  Receive Date: 20230421
  Receipt Date: 20230421
  Transmission Date: 20230721
  Serious: Yes (Hospitalization, Other)
  Sender: FDA-Public Use
  Company Number: US-SA-SAC20230420001833

PATIENT
  Age: 62 Year
  Sex: Male

DRUGS (9)
  1. TAXOTERE [Suspect]
     Active Substance: DOCETAXEL
     Dosage: 161 MG, ON DAY 5 EVERY 21 DAYS.
     Route: 042
     Dates: start: 20230203
  2. ELIQUIS [Concomitant]
     Active Substance: APIXABAN
     Indication: Deep vein thrombosis
     Dosage: 2.5 MG ORALLY TWICE DAILY
     Route: 048
     Dates: start: 202208
  3. TRELEGY ELLIPTA [Concomitant]
     Active Substance: FLUTICASONE FUROATE\UMECLIDINIUM BROMIDE\VILANTEROL TRIFENATATE
     Indication: Cough
     Dosage: UNK, QD
     Route: 055
     Dates: start: 201708
  4. LEVOTHYROXINE [Concomitant]
     Active Substance: LEVOTHYROXINE
     Indication: Hypothyroidism
     Dosage: 112 UG, QD
     Route: 048
     Dates: start: 201708
  5. ALBUTEROL\IPRATROPIUM [Concomitant]
     Active Substance: ALBUTEROL\IPRATROPIUM
     Indication: Cough
     Dosage: 3 ML, PRN
     Route: 055
     Dates: start: 201708
  6. MORPHINE [Concomitant]
     Active Substance: MORPHINE
     Indication: Cough
     Dosage: 15 MG, PRN, EVERY 6 HOURS AS NEEDED
     Route: 048
     Dates: start: 202201
  7. NEURONTIN [Concomitant]
     Active Substance: GABAPENTIN
     Indication: Neuropathy peripheral
     Dosage: 300 MG, PRN, AT BEDTIME AS NEEDED
     Route: 048
     Dates: start: 202208
  8. OBINUTUZUMAB [Concomitant]
     Active Substance: OBINUTUZUMAB
     Dosage: 1000 MG
     Route: 042
     Dates: start: 20230117
  9. NAPTUMOMAB ESTAFENATOX [Concomitant]
     Active Substance: NAPTUMOMAB ESTAFENATOX
     Dosage: 892 UG, 1-4 EVERY 21 DAYS
     Dates: start: 20230130

REACTIONS (2)
  - Febrile neutropenia [Recovered/Resolved]
  - Abdominal pain [Recovered/Resolved]

NARRATIVE: CASE EVENT DATE: 20230209
